FAERS Safety Report 17490795 (Version 15)
Quarter: 2024Q2

REPORT INFORMATION
  Report Type: Spontaneous
  Country: US (occurrence: US)
  Receive Date: 20200304
  Receipt Date: 20240613
  Transmission Date: 20240715
  Serious: Yes (Hospitalization, Other)
  Sender: FDA-Public Use
  Company Number: US-PFIZER INC-2020087327

PATIENT
  Age: 42 Year
  Sex: Female
  Weight: 113.37 kg

DRUGS (2)
  1. ENBREL [Interacting]
     Active Substance: BENZYL ALCOHOL\ETANERCEPT
     Indication: Rheumatoid arthritis
     Dosage: INJECTION 1 PER WEEK
     Route: 065
     Dates: start: 200910
  2. CYMBALTA [Interacting]
     Active Substance: DULOXETINE HYDROCHLORIDE
     Indication: Product used for unknown indication
     Dosage: UNK
     Route: 065
     Dates: start: 200901

REACTIONS (4)
  - Depression suicidal [Recovered/Resolved]
  - Depression [Recovered/Resolved]
  - Drug interaction [Recovered/Resolved]
  - Drug hypersensitivity [Unknown]

NARRATIVE: CASE EVENT DATE: 20091101
